FAERS Safety Report 5884702-6 (Version None)
Quarter: 2008Q3

REPORT INFORMATION
  Report Type: 
  Country: None (occurrence: None)
  Receive Date: 20080916
  Receipt Date: 20080909
  Transmission Date: 20090109
  Serious: Yes (Other)
  Sender: FDA-Public Use
  Company Number: US-ASTRAZENECA-2008UW14728

PATIENT
  Age: 62 Year
  Sex: Male
  Weight: 81.6 kg

DRUGS (4)
  1. NEXIUM [Suspect]
     Indication: GASTROOESOPHAGEAL REFLUX DISEASE
     Route: 048
     Dates: start: 20011101
  2. ZYRTEC [Concomitant]
     Dosage: AS NEEDED
  3. NASACORT [Concomitant]
     Dosage: AS NEEDED
  4. PRILOSEC [Concomitant]
     Dosage: 20 MG
     Dates: start: 19971001

REACTIONS (1)
  - OSTEOPOROSIS [None]
